FAERS Safety Report 18281028 (Version 13)
Quarter: 2022Q1

REPORT INFORMATION
  Report Type: Spontaneous
  Country: JP (occurrence: JP)
  Receive Date: 20200918
  Receipt Date: 20220320
  Transmission Date: 20220423
  Serious: Yes (Hospitalization, Other)
  Sender: FDA-Public Use
  Company Number: JP-ONO-2020JP021945

PATIENT
  Age: 64 Year
  Sex: Male
  Weight: 61 kg

DRUGS (5)
  1. PARSABIV [Suspect]
     Active Substance: ETELCALCETIDE HYDROCHLORIDE
     Indication: Hyperparathyroidism secondary
     Dosage: 2.5 MILLIGRAM, Q56H
     Route: 010
     Dates: start: 20191128, end: 20200107
  2. PARSABIV [Suspect]
     Active Substance: ETELCALCETIDE HYDROCHLORIDE
     Dosage: 5 MILLIGRAM, Q56H
     Route: 010
     Dates: start: 20200109
  3. OXAROL [Concomitant]
     Active Substance: MAXACALCITOL
     Dosage: 5 UG, Q56H
     Route: 042
     Dates: start: 20200225
  4. FOSRENOL [Concomitant]
     Active Substance: LANTHANUM CARBONATE
     Dosage: 1500 MILLIGRAM, QD
     Route: 048
  5. CALTAN [Concomitant]
     Active Substance: CALCIUM CARBONATE
     Dosage: 750 MILLIGRAM, QD
     Route: 048

REACTIONS (7)
  - Ileus [Not Recovered/Not Resolved]
  - Renal injury [Recovered/Resolved]
  - Feeling abnormal [Recovered/Resolved]
  - Vision blurred [Recovered/Resolved]
  - Pruritus [Recovered/Resolved]
  - Injury [Unknown]
  - Fall [Unknown]

NARRATIVE: CASE EVENT DATE: 20200908
